FAERS Safety Report 17870845 (Version 1)
Quarter: 2020Q2

REPORT INFORMATION
  Report Type: Spontaneous
  Country: SI (occurrence: SI)
  Receive Date: 20200608
  Receipt Date: 20200608
  Transmission Date: 20200714
  Serious: Yes (Death, Other)
  Sender: FDA-Public Use
  Company Number: SI-BAYER-2020-096823

PATIENT
  Age: 28 Year
  Sex: Female

DRUGS (1)
  1. STIVARGA [Suspect]
     Active Substance: REGORAFENIB
     Indication: COLON CANCER
     Dosage: UNK
     Dates: start: 201903, end: 201908

REACTIONS (6)
  - Metastases to retroperitoneum [None]
  - Palmar-plantar erythrodysaesthesia syndrome [None]
  - Metastases to lung [None]
  - Pulmonary embolism [Fatal]
  - Metastases to liver [None]
  - Malignant peritoneal neoplasm [None]

NARRATIVE: CASE EVENT DATE: 201908
